FAERS Safety Report 9287898 (Version 1)
Quarter: 2013Q2

REPORT INFORMATION
  Report Type: Spontaneous
  Country: SE (occurrence: SE)
  Receive Date: 20130514
  Receipt Date: 20130514
  Transmission Date: 20140414
  Serious: Yes (Other)
  Sender: FDA-Public Use
  Company Number: SE-ASTELLAS-2013EU004113

PATIENT
  Sex: Male

DRUGS (4)
  1. PROGRAF [Suspect]
     Dosage: 1 MG, BID
     Route: 065
     Dates: start: 2008
  2. PREDNISOLONE [Concomitant]
     Dosage: UNK
     Route: 065
  3. LASIX                              /00032601/ [Concomitant]
     Dosage: UNK
     Route: 065
  4. OMEPRAZOLE [Concomitant]
     Dosage: UNK
     Route: 065

REACTIONS (3)
  - Graft ischaemia [Unknown]
  - Angina pectoris [Unknown]
  - Peripheral ischaemia [Unknown]
